FAERS Safety Report 18879131 (Version 6)
Quarter: 2022Q2

REPORT INFORMATION
  Report Type: Report from Study
  Country: US (occurrence: US)
  Receive Date: 20210211
  Receipt Date: 20220421
  Transmission Date: 20220721
  Serious: Yes (Other)
  Sender: FDA-Public Use
  Company Number: NVSC2021US024297

PATIENT
  Sex: Female

DRUGS (2)
  1. KISQALI FEMARA CO-PACK [Suspect]
     Active Substance: LETROZOLE\RIBOCICLIB
     Indication: Product used for unknown indication
     Dosage: UNK
     Route: 048
     Dates: start: 20191201
  2. KISQALI FEMARA CO-PACK [Suspect]
     Active Substance: LETROZOLE\RIBOCICLIB
     Indication: Product used for unknown indication
     Dosage: UNK
     Route: 048
     Dates: start: 20191201

REACTIONS (12)
  - Neuropathy peripheral [Unknown]
  - Lung neoplasm malignant [Unknown]
  - Metastases to bone [Unknown]
  - Abdominal distension [Unknown]
  - White blood cell count increased [Unknown]
  - Carbohydrate antigen 15-3 increased [Unknown]
  - Full blood count abnormal [Unknown]
  - Hepatic mass [Unknown]
  - Aspartate aminotransferase increased [Unknown]
  - Constipation [Unknown]
  - Product dose omission issue [Unknown]
  - Tumour marker increased [Unknown]
